FAERS Safety Report 17482257 (Version 3)
Quarter: 2021Q3

REPORT INFORMATION
  Report Type: Report from Study
  Country: TW (occurrence: TW)
  Receive Date: 20200302
  Receipt Date: 20210816
  Transmission Date: 20211014
  Serious: Yes (Life-Threatening, Hospitalization, Other)
  Sender: FDA-Public Use
  Company Number: NVSC2020TW012567

PATIENT
  Age: 57 Year
  Sex: Female
  Weight: 59 kg

DRUGS (8)
  1. BUPRENORPHINE. [Suspect]
     Active Substance: BUPRENORPHINE
     Indication: PRODUCT USED FOR UNKNOWN INDICATION
     Dosage: 35 UG/HR
     Route: 065
     Dates: start: 20191216, end: 20200130
  2. MORPHINE SULFATE. [Concomitant]
     Active Substance: MORPHINE SULFATE
     Indication: PAIN
     Dosage: 15 MG, BID
     Route: 065
     Dates: start: 20191202, end: 20191216
  3. GRANISETRON [Concomitant]
     Active Substance: GRANISETRON
     Indication: NAUSEA
     Dosage: UNK
     Route: 048
     Dates: start: 20200130, end: 20200206
  4. ALPELISIB [Suspect]
     Active Substance: ALPELISIB
     Indication: BREAST CANCER METASTATIC
     Dosage: 300 MG, QD
     Route: 048
     Dates: start: 20200110, end: 20200114
  5. BUPRENORPHINE. [Suspect]
     Active Substance: BUPRENORPHINE
     Dosage: 52.9 UG/HR
     Route: 065
     Dates: start: 20200130
  6. XELODA [Suspect]
     Active Substance: CAPECITABINE
     Indication: PRODUCT USED FOR UNKNOWN INDICATION
     Dosage: 2?0?3?0, QD
     Route: 048
     Dates: start: 20200110, end: 20200114
  7. MORPHINE SULFATE. [Concomitant]
     Active Substance: MORPHINE SULFATE
     Dosage: 60 MG, Q12H
     Route: 065
     Dates: start: 20200224
  8. DOMPERIDONE [Concomitant]
     Active Substance: DOMPERIDONE
     Indication: NAUSEA
     Dosage: 10 MG, TID
     Route: 048
     Dates: start: 20191216, end: 20200130

REACTIONS (5)
  - Urinary tract infection enterococcal [Recovered/Resolved]
  - Pyrexia [Recovered/Resolved]
  - Hyperglycaemia [Recovered/Resolved]
  - Terminal state [Unknown]
  - Abdominal pain lower [Recovering/Resolving]

NARRATIVE: CASE EVENT DATE: 20200114
